FAERS Safety Report 18202573 (Version 5)
Quarter: 2020Q4

REPORT INFORMATION
  Report Type: Spontaneous
  Country: US (occurrence: US)
  Receive Date: 20200827
  Receipt Date: 20201007
  Transmission Date: 20210113
  Serious: Yes (Hospitalization)
  Sender: FDA-Public Use
  Company Number: US-AKCEA THERAPEUTICS-2020IS001347

PATIENT
  Age: 68 Year
  Sex: Male

DRUGS (2)
  1. TEGSEDI [Suspect]
     Active Substance: INOTERSEN SODIUM
     Indication: HEREDITARY NEUROPATHIC AMYLOIDOSIS
     Route: 058
     Dates: start: 20200311, end: 20200923
  2. ISSD (INTEGRATED SYRINGE SAFETY DEVICE) [Suspect]
     Active Substance: DEVICE

REACTIONS (22)
  - Pain [Not Recovered/Not Resolved]
  - Dehydration [Not Recovered/Not Resolved]
  - Renal disorder [Unknown]
  - Blood creatinine increased [Unknown]
  - Urine abnormality [Unknown]
  - Protein urine present [Unknown]
  - Urine ketone body present [Unknown]
  - Hypotension [Unknown]
  - Fatigue [Unknown]
  - Glomerular filtration rate decreased [Not Recovered/Not Resolved]
  - Bacterial test positive [Unknown]
  - Ejection fraction decreased [Unknown]
  - Fall [Unknown]
  - Vomiting [Not Recovered/Not Resolved]
  - Facial bones fracture [Unknown]
  - Laboratory test abnormal [Not Recovered/Not Resolved]
  - Glucose urine [Unknown]
  - Crystal urine present [Unknown]
  - Urinary casts [Unknown]
  - Drug ineffective [Unknown]
  - Urine protein/creatinine ratio increased [Unknown]
  - Platelet count decreased [Unknown]

NARRATIVE: CASE EVENT DATE: 20200811
